FAERS Safety Report 6737530-3 (Version None)
Quarter: 2010Q2

REPORT INFORMATION
  Report Type: 
  Country: None (occurrence: None)
  Receive Date: 20100524
  Receipt Date: 20100512
  Transmission Date: 20101027
  Serious: No
  Sender: FDA-Public Use
  Company Number: US-B.I. PHARMACEUTICALS,INC./RIDGEFIELD-2010-BP-05461BP

PATIENT
  Sex: Female

DRUGS (5)
  1. ZANTAC 75 [Suspect]
     Indication: DYSPEPSIA
     Dosage: 150 MG
     Route: 048
     Dates: start: 20100510, end: 20100511
  2. DILANTIN [Concomitant]
     Indication: EPILEPSY
  3. SYNTHROID [Concomitant]
     Indication: HYPOTHYROIDISM
  4. KLONOPIN [Concomitant]
     Indication: ANXIETY
  5. ZOCOR [Concomitant]
     Indication: BLOOD CHOLESTEROL INCREASED

REACTIONS (1)
  - DRUG INEFFECTIVE [None]
